FAERS Safety Report 20944995 (Version 2)
Quarter: 2022Q3

REPORT INFORMATION
  Report Type: Spontaneous
  Country: CA (occurrence: CA)
  Receive Date: 20220610
  Receipt Date: 20220715
  Transmission Date: 20221027
  Serious: Yes (Other)
  Sender: FDA-Public Use
  Company Number: CA-PFIZER INC-202200809784

PATIENT
  Age: 34 Year
  Sex: Male

DRUGS (3)
  1. XELJANZ [Suspect]
     Active Substance: TOFACITINIB CITRATE
     Indication: Colitis ulcerative
     Dosage: 10 MG 2X/DAY FOR 8 WEEKS
     Route: 048
     Dates: start: 20220504
  2. XELJANZ [Suspect]
     Active Substance: TOFACITINIB CITRATE
     Dosage: 5 MG 2X/DAY MAINTENANCE
     Route: 048
  3. PREDNISONE [Concomitant]
     Active Substance: PREDNISONE
     Dosage: 40 MG FREQUENCY NOT AVAILABLE
     Route: 065
     Dates: start: 202204

REACTIONS (9)
  - Abdominal pain [Unknown]
  - Haematochezia [Unknown]
  - Colectomy [Unknown]
  - Ileostomy [Unknown]
  - Drug ineffective [Unknown]
  - Frequent bowel movements [Unknown]
  - Vomiting [Unknown]
  - Loss of personal independence in daily activities [Unknown]
  - Proctitis [Unknown]

NARRATIVE: CASE EVENT DATE: 20220101
